FAERS Safety Report 10471885 (Version 1)
Quarter: 2014Q3

REPORT INFORMATION
  Report Type: Spontaneous
  Country: BR (occurrence: BR)
  Receive Date: 20140924
  Receipt Date: 20140924
  Transmission Date: 20150326
  Serious: Yes (Death)
  Sender: FDA-Public Use
  Company Number: BR-ROCHE-1463788

PATIENT
  Age: 49 Year
  Sex: Female

DRUGS (2)
  1. XELODA [Suspect]
     Active Substance: CAPECITABINE
     Indication: COLORECTAL CANCER
     Route: 048
     Dates: start: 201408
  2. XELODA [Suspect]
     Active Substance: CAPECITABINE
     Indication: METASTASIS

REACTIONS (4)
  - Mucous stools [Unknown]
  - Dry skin [Unknown]
  - Dyspnoea [Fatal]
  - Haematochezia [Unknown]

NARRATIVE: CASE EVENT DATE: 201408
